FAERS Safety Report 5669636-4 (Version None)
Quarter: 2008Q1

REPORT INFORMATION
  Report Type: 
  Country: None (occurrence: None)
  Receive Date: 20080317
  Receipt Date: 20080311
  Transmission Date: 20080703
  Serious: Yes (Other)
  Sender: FDA-Public Use
  Company Number: GB-WYE-G01238708

PATIENT
  Sex: Female

DRUGS (5)
  1. EFFEXOR [Suspect]
     Route: 048
     Dates: start: 20070407
  2. EFFEXOR [Suspect]
     Route: 048
  3. DIAZEPAM [Concomitant]
     Dosage: 2MG PRN
  4. AMITRIPTYLINE HCL [Concomitant]
     Dosage: UNKNOWN
  5. QUETIAPINE [Concomitant]
     Dosage: 1 AT NIGHT

REACTIONS (4)
  - BLOOD URINE PRESENT [None]
  - DRUG WITHDRAWAL SYNDROME [None]
  - EPISTAXIS [None]
  - GINGIVAL BLEEDING [None]
